FAERS Safety Report 10227578 (Version 1)
Quarter: 2014Q2

REPORT INFORMATION
  Report Type: Spontaneous
  Country: US (occurrence: US)
  Receive Date: 20140610
  Receipt Date: 20140610
  Transmission Date: 20141212
  Serious: Yes (Other)
  Sender: FDA-Public Use
  Company Number: US-ASTRAZENECA-2014SE38916

PATIENT
  Sex: Female

DRUGS (3)
  1. NEXIUM [Suspect]
     Indication: EXCORIATION
     Route: 048
     Dates: start: 2012
  2. NEXIUM [Suspect]
     Indication: HIATUS HERNIA
     Route: 048
     Dates: start: 2012
  3. PLAVIX [Concomitant]
     Dosage: UNKNOWN
     Route: 048

REACTIONS (2)
  - Cerebrovascular accident [Unknown]
  - Intentional product misuse [Unknown]
